FAERS Safety Report 14841739 (Version 2)
Quarter: 2018Q2

REPORT INFORMATION
  Report Type: Spontaneous
  Country: FR (occurrence: FR)
  Receive Date: 20180503
  Receipt Date: 20180518
  Transmission Date: 20180711
  Serious: Yes (Hospitalization)
  Sender: FDA-Public Use
  Company Number: FR-ACTELION-A-CH2018-171144

PATIENT
  Age: 50 Year
  Sex: Female

DRUGS (3)
  1. SILDENAFIL. [Suspect]
     Active Substance: SILDENAFIL
     Indication: PULMONARY ARTERIAL HYPERTENSION
     Dosage: UNK
     Route: 065
     Dates: start: 201002
  2. EPOPROSTENOL. [Suspect]
     Active Substance: EPOPROSTENOL
     Indication: PULMONARY ARTERIAL HYPERTENSION
     Dosage: 36 NG/KG, PER MIN
     Route: 042
     Dates: start: 201203
  3. BOSENTAN. [Suspect]
     Active Substance: BOSENTAN
     Indication: PULMONARY ARTERIAL HYPERTENSION
     Dosage: UNK
     Route: 048
     Dates: start: 201010

REACTIONS (12)
  - Device related sepsis [Recovering/Resolving]
  - General physical health deterioration [Recovering/Resolving]
  - Inflammation [Recovering/Resolving]
  - C-reactive protein increased [Recovering/Resolving]
  - Concomitant disease aggravated [Recovering/Resolving]
  - Haemodynamic instability [Recovering/Resolving]
  - Weight decreased [Recovering/Resolving]
  - Procalcitonin increased [Recovering/Resolving]
  - Catheter management [Unknown]
  - Pyrexia [Recovering/Resolving]
  - Bacteraemia [Recovering/Resolving]
  - Blood culture positive [Recovering/Resolving]

NARRATIVE: CASE EVENT DATE: 201503
